FAERS Safety Report 15714107 (Version 1)
Quarter: 2018Q4

REPORT INFORMATION
  Report Type: Spontaneous
  Country: IR (occurrence: IR)
  Receive Date: 20181212
  Receipt Date: 20181212
  Transmission Date: 20190205
  Serious: Yes (Congenital Anomaly)
  Sender: FDA-Public Use
  Company Number: IR-NOVOPROD-637213

PATIENT
  Age: 3 Week
  Sex: Male
  Weight: 4 kg

DRUGS (2)
  1. NOVORAPID [Suspect]
     Active Substance: INSULIN ASPART
     Indication: TYPE 2 DIABETES MELLITUS
     Dosage: 16 TDS
     Route: 064
     Dates: start: 20180910, end: 20181111
  2. LEVEMIR [Suspect]
     Active Substance: INSULIN DETEMIR
     Indication: TYPE 2 DIABETES MELLITUS
     Dosage: 20 BID
     Route: 064
     Dates: start: 20180910, end: 20181111

REACTIONS (2)
  - Foetal exposure during pregnancy [Recovered/Resolved]
  - Monoplegia [Unknown]

NARRATIVE: CASE EVENT DATE: 20180910
